FAERS Safety Report 4338831-9 (Version None)
Quarter: 2004Q2

REPORT INFORMATION
  Report Type: 
  Country: None (occurrence: None)
  Receive Date: 20040409
  Receipt Date: 20040329
  Transmission Date: 20050107
  Serious: Yes (Hospitalization)
  Sender: FDA-Public Use
  Company Number: UK070695

PATIENT
  Sex: Male
  Weight: 112 kg

DRUGS (2)
  1. NEUPOGEN [Suspect]
     Indication: PRE-EXISTING DISEASE
     Dosage: 10 MCG/KG, 1 IN 1 DAYS, SC
     Route: 058
     Dates: start: 20031229, end: 20040103
  2. TIROFIBAN [Concomitant]

REACTIONS (2)
  - CHRONIC OBSTRUCTIVE AIRWAYS DISEASE EXACERBATED [None]
  - INFECTION [None]
